FAERS Safety Report 4553504-5 (Version None)
Quarter: 2004Q4

REPORT INFORMATION
  Report Type: 
  Country: None (occurrence: None)
  Receive Date: 20041227
  Receipt Date: 20041027
  Transmission Date: 20050328
  Serious: No
  Sender: FDA-Public Use
  Company Number: 04P-163-0278891-00

PATIENT
  Age: 47 Year
  Sex: Female
  Weight: 74.8435 kg

DRUGS (4)
  1. HUMIRA [Suspect]
     Indication: RHEUMATOID ARTHRITIS
     Dosage: 40 MG, 1 IN 1 WK, SUBCUTANEOUS
     Route: 058
     Dates: start: 20030801, end: 20041006
  2. BUCINDOLOL HYDROCHLORIDE [Concomitant]
  3. IMURAN [Concomitant]
  4. PREDNISONE [Concomitant]

REACTIONS (2)
  - ANIMAL SCRATCH [None]
  - ARTHRITIS [None]
